FAERS Safety Report 6922597-X (Version None)
Quarter: 2010Q3

REPORT INFORMATION
  Report Type: 
  Country: None (occurrence: None)
  Receive Date: 20100813
  Receipt Date: 20100806
  Transmission Date: 20110219
  Serious: Yes (Death, Hospitalization)
  Sender: FDA-Public Use
  Company Number: US-CEPHALON-2010003338

PATIENT
  Sex: Female
  Weight: 59 kg

DRUGS (15)
  1. NUVIGIL [Suspect]
     Indication: CIRCADIAN RHYTHM SLEEP DISORDER
     Route: 048
     Dates: start: 20100217
  2. CYMBALTA [Suspect]
     Dates: end: 20100618
  3. IMITREX [Suspect]
     Route: 048
  4. IMITREX [Suspect]
     Route: 058
     Dates: end: 20100617
  5. TRAZODONE HCL [Suspect]
  6. ULTRAM [Concomitant]
     Indication: MIGRAINE
  7. LORTAB [Concomitant]
  8. XANAX [Concomitant]
  9. RELPAX [Concomitant]
     Indication: MIGRAINE
  10. ANAPROX [Concomitant]
     Dates: start: 20070506, end: 20100618
  11. CLONAZEPAM [Concomitant]
     Dates: end: 20100618
  12. DARVOCET [Concomitant]
  13. INDERAL [Concomitant]
  14. SYNTHROID [Concomitant]
     Dates: end: 20100618
  15. TEMAZEPAM [Concomitant]

REACTIONS (14)
  - ANAEMIA [None]
  - BRAIN DEATH [None]
  - CONVULSION [None]
  - ENCEPHALOPATHY [None]
  - LIVER DISORDER [None]
  - MENTAL STATUS CHANGES [None]
  - METABOLIC ACIDOSIS [None]
  - MIGRAINE [None]
  - RENAL FAILURE ACUTE [None]
  - RESPIRATORY DEPRESSION [None]
  - RESPIRATORY FAILURE [None]
  - RHABDOMYOLYSIS [None]
  - SEROTONIN SYNDROME [None]
  - STATUS EPILEPTICUS [None]
